FAERS Safety Report 8113771-8 (Version None)
Quarter: 2012Q1

REPORT INFORMATION
  Report Type: 
  Country: None (occurrence: None)
  Receive Date: 20120203
  Receipt Date: 20120125
  Transmission Date: 20120608
  Serious: Yes (Hospitalization)
  Sender: FDA-Public Use
  Company Number: FR-JNJFOC-20120201183

PATIENT
  Age: 29 Year
  Sex: Female

DRUGS (2)
  1. IBUPROFEN [Suspect]
     Indication: NEURALGIA
     Dosage: CUMULATIVE DOSE TO 1ST REACTION : 4800MG
     Route: 048
     Dates: start: 20111212, end: 20111215
  2. NORDETTE-21 [Suspect]
     Indication: CONTRACEPTION
     Route: 048

REACTIONS (1)
  - ERYTHEMA NODOSUM [None]
